FAERS Safety Report 9477178 (Version 1)
Quarter: 2013Q3

REPORT INFORMATION
  Report Type: Not Available
  Country: US (occurrence: US)
  Receive Date: 20130826
  Receipt Date: 20130826
  Transmission Date: 20140515
  Serious: No
  Sender: FDA-Public Use
  Company Number: US-AMARIN PHARMA, INC.-2013AMR000029

PATIENT
  Sex: Male

DRUGS (1)
  1. VASCEPA [Suspect]
     Indication: BLOOD CHOLESTEROL
     Route: 065
     Dates: start: 20130603

REACTIONS (2)
  - Abdominal discomfort [Recovered/Resolved]
  - Wrong technique in drug usage process [Recovered/Resolved]
